FAERS Safety Report 24441238 (Version 2)
Quarter: 2024Q4

REPORT INFORMATION
  Report Type: Spontaneous
  Country: US (occurrence: US)
  Receive Date: 20241016
  Receipt Date: 20241017
  Transmission Date: 20250114
  Serious: No
  Sender: ROCHE
  Company Number: US-ROCHE-3483743

PATIENT
  Age: 1 Year
  Sex: Male
  Weight: 9.53 kg

DRUGS (4)
  1. HEMLIBRA [Suspect]
     Active Substance: EMICIZUMAB-KXWH
     Indication: Factor VIII deficiency
     Dosage: (0.42 ML), TAKES ON THURSDAYS. LAST DOSE 21/DEC/2023
     Route: 058
     Dates: start: 20221210
  2. HEMLIBRA [Suspect]
     Active Substance: EMICIZUMAB-KXWH
     Indication: Factor VIII deficiency
     Route: 058
     Dates: start: 202302, end: 202312
  3. AMICAR [Concomitant]
     Active Substance: AMINOCAPROIC ACID
     Indication: Factor VIII deficiency
     Dosage: 0.5 G
     Route: 048
     Dates: start: 20221210
  4. ADVATE [Concomitant]
     Active Substance: ANTIHEMOPHILIC FACTOR, HUMAN RECOMBINANT

REACTIONS (3)
  - Product dose omission issue [Unknown]
  - Product contamination physical [Unknown]
  - No adverse event [Unknown]

NARRATIVE: CASE EVENT DATE: 20231228
